FAERS Safety Report 6646133-0 (Version None)
Quarter: 2010Q1

REPORT INFORMATION
  Report Type: 
  Country: None (occurrence: None)
  Receive Date: 20100318
  Receipt Date: 20100303
  Transmission Date: 20100710
  Serious: Yes (Hospitalization, Disabling, Other)
  Sender: FDA-Public Use
  Company Number: LVR-00195

PATIENT
  Age: 25 Year
  Sex: Female

DRUGS (2)
  1. LO/OVRAL-28 [Suspect]
     Indication: MIGRAINE
     Dates: start: 19850101
  2. XANAX [Concomitant]

REACTIONS (46)
  - ACTIVITIES OF DAILY LIVING IMPAIRED [None]
  - ALOPECIA [None]
  - ANGER [None]
  - ANXIETY [None]
  - ASTHENIA [None]
  - AUTOIMMUNE THYROIDITIS [None]
  - BEDRIDDEN [None]
  - BLADDER PAIN [None]
  - BLINDNESS TRANSIENT [None]
  - BURNING MOUTH SYNDROME [None]
  - CATATONIA [None]
  - CHEST PAIN [None]
  - CONVULSION [None]
  - DECREASED APPETITE [None]
  - DISLOCATION OF VERTEBRA [None]
  - DISTURBANCE IN ATTENTION [None]
  - DRUG INEFFECTIVE FOR UNAPPROVED INDICATION [None]
  - DRY MOUTH [None]
  - ENDOMETRIOSIS [None]
  - FAILURE TO THRIVE [None]
  - FALL [None]
  - FEELING ABNORMAL [None]
  - GASTROINTESTINAL DISORDER [None]
  - GINGIVAL DISORDER [None]
  - HAIR GROWTH ABNORMAL [None]
  - HEPATIC MASS [None]
  - IMPAIRED DRIVING ABILITY [None]
  - INSOMNIA [None]
  - JOINT DISLOCATION [None]
  - MENOPAUSE [None]
  - MIGRAINE [None]
  - MUSCLE ATROPHY [None]
  - ORAL DISORDER [None]
  - PALPITATIONS [None]
  - POOR DENTAL CONDITION [None]
  - PSYCHOTIC DISORDER [None]
  - RASH [None]
  - SKIN ATROPHY [None]
  - SPINAL FRACTURE [None]
  - TOOTH DISORDER [None]
  - TOOTH EROSION [None]
  - TREMOR [None]
  - ULCER [None]
  - UTERINE LEIOMYOMA [None]
  - VITAMIN B12 DECREASED [None]
  - WEIGHT DECREASED [None]
